FAERS Safety Report 7246988-5 (Version None)
Quarter: 2011Q1

REPORT INFORMATION
  Report Type: 
  Country: None (occurrence: None)
  Receive Date: 20110127
  Receipt Date: 20110114
  Transmission Date: 20110831
  Serious: Yes (Hospitalization, Other)
  Sender: FDA-Public Use
  Company Number: DE-ASTRAZENECA-2011SE03332

PATIENT
  Age: 68 Year
  Sex: Female

DRUGS (9)
  1. SEROQUEL XR [Suspect]
     Route: 048
     Dates: start: 20100923, end: 20100926
  2. LITHIOFOR [Suspect]
     Route: 048
     Dates: start: 20100921
  3. SEROQUEL XR [Suspect]
     Indication: SCHIZOAFFECTIVE DISORDER
     Route: 048
     Dates: start: 20090501, end: 20100919
  4. SEROQUEL XR [Suspect]
     Route: 048
     Dates: start: 20100921, end: 20100922
  5. SEROQUEL XR [Suspect]
     Route: 048
     Dates: start: 20101004
  6. LITHIOFOR [Suspect]
     Route: 048
     Dates: start: 19950101, end: 20100920
  7. AURORIX [Concomitant]
     Route: 048
     Dates: start: 20100901, end: 20100920
  8. SEROQUEL XR [Suspect]
     Route: 048
     Dates: start: 20100920, end: 20100920
  9. SEROQUEL XR [Suspect]
     Route: 048
     Dates: start: 20100927, end: 20101003

REACTIONS (3)
  - PSYCHIATRIC DECOMPENSATION [None]
  - NEUTROPENIA [None]
  - DRUG DOSE OMISSION [None]
